FAERS Safety Report 10921862 (Version 3)
Quarter: 2015Q3

REPORT INFORMATION
  Report Type: Spontaneous
  Country: US (occurrence: US)
  Receive Date: 20150317
  Receipt Date: 20150724
  Transmission Date: 20151125
  Serious: Yes (Other)
  Sender: FDA-Public Use
  Company Number: US-ASTRAZENECA-2015SE22976

PATIENT
  Sex: Female
  Weight: 93 kg

DRUGS (11)
  1. OMEPRAZOLE. [Suspect]
     Active Substance: OMEPRAZOLE
     Indication: ABDOMINAL DISCOMFORT
     Route: 048
  2. ALBUTEROL SULPHATE [Concomitant]
     Active Substance: ALBUTEROL
     Indication: ASTHMA
  3. NOVOLOG [Concomitant]
     Active Substance: INSULIN ASPART
     Indication: TYPE 1 DIABETES MELLITUS
     Route: 058
  4. BYDUREON [Suspect]
     Active Substance: EXENATIDE
     Indication: TYPE 1 DIABETES MELLITUS
     Route: 058
     Dates: start: 201406
  5. DIAZEPAM. [Concomitant]
     Active Substance: DIAZEPAM
     Indication: RESTLESS LEGS SYNDROME
  6. ENALAPRIL [Concomitant]
     Active Substance: ENALAPRIL
     Indication: BLOOD PRESSURE ABNORMAL
  7. LEVEMIR [Concomitant]
     Active Substance: INSULIN DETEMIR
     Indication: TYPE 1 DIABETES MELLITUS
  8. CALZITRIOL [Concomitant]
     Indication: CALCIUM DEFICIENCY
  9. LINZESS [Concomitant]
     Active Substance: LINACLOTIDE
     Indication: INFLAMMATORY BOWEL DISEASE
  10. BENLAFAXINE [Concomitant]
     Indication: NERVOUS SYSTEM DISORDER
  11. MYRBETRIQ [Concomitant]
     Active Substance: MIRABEGRON
     Indication: BLADDER DISCOMFORT

REACTIONS (11)
  - Glycosylated haemoglobin increased [Unknown]
  - Injection site erythema [Unknown]
  - Blindness [Unknown]
  - Pyrexia [Unknown]
  - Skin discomfort [Unknown]
  - Injection site urticaria [Unknown]
  - Skin exfoliation [Unknown]
  - Dry skin [Unknown]
  - Urticaria [Unknown]
  - Injection site hypersensitivity [Unknown]
  - Rash [Unknown]
